FAERS Safety Report 5899715-8 (Version None)
Quarter: 2008Q3

REPORT INFORMATION
  Report Type: 
  Country: None (occurrence: None)
  Receive Date: 20080919
  Receipt Date: 20080602
  Transmission Date: 20090109
  Serious: No
  Sender: FDA-Public Use
  Company Number: US-WYE-H03957208

PATIENT
  Age: 70 Year
  Sex: Female

DRUGS (6)
  1. PRISTIQ [Suspect]
     Indication: DEPRESSION
     Dosage: 50 MG 1X PER 1 DAY, ORAL
     Route: 048
     Dates: start: 20080401
  2. CIPRO [Suspect]
     Indication: URINARY TRACT INFECTION
     Dates: start: 20080101, end: 20080601
  3. TEGRETOL [Concomitant]
  4. LISINOPRIL [Concomitant]
  5. NORVASC [Concomitant]
  6. DESERIL (METHYSERGIDE) [Concomitant]

REACTIONS (5)
  - ANXIETY [None]
  - DIZZINESS [None]
  - FATIGUE [None]
  - TREMOR [None]
  - VISION BLURRED [None]
